FAERS Safety Report 14263178 (Version 2)
Quarter: 2018Q4

REPORT INFORMATION
  Report Type: Spontaneous
  Country: US (occurrence: US)
  Receive Date: 20171208
  Receipt Date: 20181114
  Transmission Date: 20190204
  Serious: No
  Sender: FDA-Public Use
  Company Number: US-TEVA-2017-US-827303

PATIENT
  Age: 37 Year
  Sex: Female

DRUGS (1)
  1. ESTRADIOL VALERATE. [Suspect]
     Active Substance: ESTRADIOL VALERATE
     Route: 065

REACTIONS (2)
  - Headache [Unknown]
  - Insomnia [Unknown]
